FAERS Safety Report 12136538 (Version 1)
Quarter: 2016Q1

REPORT INFORMATION
  Report Type: Spontaneous
  Country: NL (occurrence: NL)
  Receive Date: 20160302
  Receipt Date: 20160302
  Transmission Date: 20160526
  Serious: Yes (Life-Threatening, Hospitalization)
  Sender: FDA-Public Use
  Company Number: NL-TEVA-638099ACC

PATIENT
  Age: 6 Year
  Sex: Female
  Weight: 18 kg

DRUGS (1)
  1. AMOXICILLIN SUSP ORAAL 100MG/ML [Suspect]
     Active Substance: AMOXICILLIN
     Indication: VIRAL INFECTION
     Dosage: 15 ML DAILY; 15ML, THREE TIMES DAILY 5 PIECES, ADDITIONAL INFORMATION: THREE TIMES DAILY 5 ML
     Route: 048
     Dates: start: 20160201, end: 20160205

REACTIONS (5)
  - Joint swelling [Recovering/Resolving]
  - Hypersensitivity vasculitis [Recovering/Resolving]
  - Arthralgia [Recovering/Resolving]
  - Abasia [Recovering/Resolving]
  - Dysstasia [Recovering/Resolving]

NARRATIVE: CASE EVENT DATE: 20160202
